FAERS Safety Report 4318165-9 (Version None)
Quarter: 2004Q1

REPORT INFORMATION
  Report Type: 
  Country: None (occurrence: None)
  Receive Date: 20040317
  Receipt Date: 20040311
  Transmission Date: 20041129
  Serious: Yes (Death)
  Sender: FDA-Public Use
  Company Number: US-ROCHE-361595

PATIENT
  Age: 31 Year
  Sex: Male

DRUGS (3)
  1. ROCEPHIN [Suspect]
     Indication: PNEUMONIA
     Route: 042
     Dates: start: 20040208
  2. LEVOFLOXACIN [Concomitant]
  3. AZITHROMYCIN [Concomitant]

REACTIONS (2)
  - ANAPHYLACTIC SHOCK [None]
  - CARDIO-RESPIRATORY ARREST [None]
